FAERS Safety Report 11540001 (Version 2)
Quarter: 2015Q3

REPORT INFORMATION
  Report Type: Spontaneous
  Country: US (occurrence: US)
  Receive Date: 20150923
  Receipt Date: 20150925
  Transmission Date: 20151125
  Serious: Yes (Hospitalization, Other)
  Sender: FDA-Public Use
  Company Number: US-PFIZER INC-2015314303

PATIENT
  Age: 50 Year
  Sex: Male
  Weight: 88 kg

DRUGS (4)
  1. CIPROFLOXACIN. [Suspect]
     Active Substance: CIPROFLOXACIN
     Dosage: UNK
     Dates: start: 2015
  2. AZTREONAM. [Suspect]
     Active Substance: AZTREONAM
     Indication: OSTEOMYELITIS
     Dosage: 1 G, 3X/DAY (Q 8 HOURS)
  3. DOXYCYCLINE HYCLATE. [Suspect]
     Active Substance: DOXYCYCLINE HYCLATE
     Dosage: UNK
     Dates: start: 2015
  4. DAPTOMYCIN. [Suspect]
     Active Substance: DAPTOMYCIN
     Indication: OSTEOMYELITIS
     Dosage: 475 MG, 1X/DAY (Q 24 HOURS)
     Route: 042
     Dates: start: 20150915, end: 20150916

REACTIONS (3)
  - Osteomyelitis [Unknown]
  - Skin ulcer [Unknown]
  - Condition aggravated [Unknown]
